FAERS Safety Report 26064050 (Version 1)
Quarter: 2025Q4

REPORT INFORMATION
  Report Type: Report from Study
  Country: CN (occurrence: None)
  Receive Date: 20251119
  Receipt Date: 20251119
  Transmission Date: 20260118
  Serious: Yes (Hospitalization)
  Sender: ALEXION PHARMACEUTICALS
  Company Number: CN-ASTRAZENECA-202511GLO015067CN

PATIENT
  Age: 12 Year
  Sex: Female

DRUGS (1)
  1. SELUMETINIB [Suspect]
     Active Substance: SELUMETINIB
     Dosage: 25 MILLIGRAM, BID
     Route: 065
     Dates: start: 20240304

REACTIONS (1)
  - Scoliosis [Not Recovered/Not Resolved]

NARRATIVE: CASE EVENT DATE: 20250820
